FAERS Safety Report 7436141-4 (Version None)
Quarter: 2011Q2

REPORT INFORMATION
  Report Type: 
  Country: None (occurrence: None)
  Receive Date: 20110425
  Receipt Date: 20110421
  Transmission Date: 20111010
  Serious: Yes (Death, Other)
  Sender: FDA-Public Use
  Company Number: JP-ABBOTT-11P-087-0717671-00

PATIENT
  Age: 55 Year
  Sex: Male
  Weight: 81 kg

DRUGS (6)
  1. ANTI-INFLAMMATORY ANALGESIC [Concomitant]
     Indication: ARTHRALGIA
  2. CYCLOSPORINE [Suspect]
     Indication: IMMUNOSUPPRESSION
     Dosage: 150 MG DAILY
  3. CYCLOSPORINE [Suspect]
     Indication: NEPHROTIC SYNDROME
  4. PREDNISOLONE [Suspect]
     Indication: IMMUNOSUPPRESSION
     Dosage: 60 MG DAILY
  5. METHYLPREDNISOLONE [Suspect]
     Indication: IMMUNOSUPPRESSION
     Dosage: 500 MG DAILY
  6. AUGMENTIN [Concomitant]
     Indication: NEPHROTIC SYNDROME

REACTIONS (3)
  - SHOCK HAEMORRHAGIC [None]
  - CYTOMEGALOVIRUS GASTROINTESTINAL INFECTION [None]
  - GASTROINTESTINAL HAEMORRHAGE [None]
